FAERS Safety Report 5890275-4 (Version None)
Quarter: 2008Q3

REPORT INFORMATION
  Report Type: 
  Country: None (occurrence: None)
  Receive Date: 20080918
  Receipt Date: 20080911
  Transmission Date: 20090109
  Serious: Yes (Other)
  Sender: FDA-Public Use
  Company Number: MEDI-0007116

PATIENT
  Age: 17 Month
  Sex: Female

DRUGS (1)
  1. SYNAGIS [Suspect]
     Indication: ANTIVIRAL PROPHYLAXIS
     Dosage: 143 MG, INTRAMUSCULAR
     Route: 030
     Dates: start: 20080910, end: 20080910

REACTIONS (5)
  - EYE ROLLING [None]
  - FOAMING AT MOUTH [None]
  - OEDEMA PERIPHERAL [None]
  - RASH [None]
  - URTICARIA [None]
